FAERS Safety Report 8976802 (Version 1)
Quarter: 2012Q4

REPORT INFORMATION
  Report Type: 
  Country: SE (occurrence: SE)
  Receive Date: 20121219
  Receipt Date: 20121219
  Transmission Date: 20130627
  Serious: Yes (Other)
  Sender: FDA-Public Use
  Company Number: SE-PFIZER INC-2011075623

PATIENT
  Age: 68 Year
  Sex: Female
  Weight: 47 kg

DRUGS (1)
  1. DALACIN [Suspect]
     Indication: TOOTH INFECTION
     Dosage: 300 mg, 2x/day
     Dates: start: 20080307, end: 20080318

REACTIONS (8)
  - Clostridium difficile infection [Recovered/Resolved]
  - Irritable bowel syndrome [Unknown]
  - Diarrhoea [Recovered/Resolved]
  - Kyphosis [Unknown]
  - Muscle spasms [Unknown]
  - Arthralgia [Unknown]
  - Fatigue [Unknown]
  - Cerumen impaction [Recovered/Resolved]
